FAERS Safety Report 5393707-3 (Version None)
Quarter: 2007Q3

REPORT INFORMATION
  Report Type: 
  Country: None (occurrence: None)
  Receive Date: 20070723
  Receipt Date: 20070712
  Transmission Date: 20080115
  Serious: Yes (Hospitalization)
  Sender: FDA-Public Use
  Company Number: GB-AMGEN-US234432

PATIENT
  Sex: Male

DRUGS (2)
  1. ENBREL [Suspect]
     Indication: DRUG USE FOR UNKNOWN INDICATION
     Dosage: UNKNOWN
     Route: 065
     Dates: start: 20060621, end: 20061101
  2. METHOTREXATE [Concomitant]
     Dosage: 10MG - 12MG FREQUENCY NOT STATED
     Route: 065

REACTIONS (1)
  - PANCREATITIS [None]
